FAERS Safety Report 14641159 (Version 1)
Quarter: 2018Q1

REPORT INFORMATION
  Report Type: Spontaneous
  Country: CH (occurrence: CH)
  Receive Date: 20180315
  Receipt Date: 20180315
  Transmission Date: 20180509
  Serious: Yes (Hospitalization, Other)
  Sender: FDA-Public Use
  Company Number: CH-GILEAD-2018-0325175

PATIENT
  Age: 52 Year
  Sex: Male

DRUGS (9)
  1. AMIODARONE [Suspect]
     Active Substance: AMIODARONE
     Indication: SUPRAVENTRICULAR TACHYCARDIA
     Dosage: 200 MG, QD
     Route: 065
  2. ALLOPURINOL. [Concomitant]
     Active Substance: ALLOPURINOL
  3. METOPROLOL. [Concomitant]
     Active Substance: METOPROLOL
     Dosage: 75 MG, QD
  4. LEVOTHYROXINE. [Concomitant]
     Active Substance: LEVOTHYROXINE
  5. HARVONI [Suspect]
     Active Substance: LEDIPASVIR\SOFOSBUVIR
     Indication: CHRONIC HEPATITIS C
     Dosage: 1 DF, UNK
     Route: 065
     Dates: start: 201512, end: 201512
  6. TORASEMIDE [Concomitant]
     Active Substance: TORSEMIDE
  7. FERRIC HYDROXIDE [Concomitant]
     Active Substance: FERRIC HYDROXIDE
  8. SILDENAFIL. [Concomitant]
     Active Substance: SILDENAFIL
     Dosage: 60 MG, QD
  9. URSODEOXYCHOLIC ACID [Concomitant]
     Active Substance: URSODIOL

REACTIONS (4)
  - Atrioventricular block second degree [Recovered/Resolved]
  - Cardiac pacemaker insertion [Recovered/Resolved]
  - Sinus arrest [Recovered/Resolved]
  - Bradycardia [Recovered/Resolved]

NARRATIVE: CASE EVENT DATE: 201512
